FAERS Safety Report 15693093 (Version 1)
Quarter: 2018Q4

REPORT INFORMATION
  Report Type: Report from Study
  Country: None (occurrence: US)
  Receive Date: 20181206
  Receipt Date: 20181206
  Transmission Date: 20190205
  Serious: Yes (Other)
  Sender: FDA-Public Use
  Company Number: US-ABBVIE-18K-163-2309458-00

PATIENT
  Age: 65 Year
  Sex: Female

DRUGS (1)
  1. HUMIRA [Suspect]
     Active Substance: ADALIMUMAB
     Indication: PSORIASIS
     Route: 058

REACTIONS (6)
  - Neovascular age-related macular degeneration [Recovering/Resolving]
  - Anxiety [Recovering/Resolving]
  - Dry age-related macular degeneration [Recovering/Resolving]
  - Stress [Recovering/Resolving]
  - Cataract [Recovering/Resolving]
  - Glaucoma [Recovering/Resolving]

NARRATIVE: CASE EVENT DATE: 201801
